FAERS Safety Report 16784712 (Version 1)
Quarter: 2019Q3

REPORT INFORMATION
  Report Type: Spontaneous
  Country: US (occurrence: US)
  Receive Date: 20190717
  Receipt Date: 20190717
  Transmission Date: 20191005
  Serious: Yes (Hospitalization)
  Sender: FDA-Public Use
  Company Number: None

PATIENT
  Age: 57 Year
  Sex: Male

DRUGS (2)
  1. EMPAGLIFLOZIN [Suspect]
     Active Substance: EMPAGLIFLOZIN
     Indication: DIABETES MELLITUS
  2. EMPAGLIFLOZIN [Suspect]
     Active Substance: EMPAGLIFLOZIN
     Indication: CARDIAC FAILURE CONGESTIVE
     Dates: start: 20190414, end: 20190530

REACTIONS (2)
  - Ventricular tachycardia [None]
  - Acute kidney injury [None]

NARRATIVE: CASE EVENT DATE: 20190529
